FAERS Safety Report 16010573 (Version 3)
Quarter: 2019Q2

REPORT INFORMATION
  Report Type: Spontaneous
  Country: US (occurrence: US)
  Receive Date: 20190225
  Receipt Date: 20190514
  Transmission Date: 20190711
  Serious: No
  Sender: FDA-Public Use
  Company Number: US-PFIZER INC-2019070906

PATIENT
  Age: 76 Year
  Sex: Female
  Weight: 68.98 kg

DRUGS (3)
  1. KERYDIN [Suspect]
     Active Substance: TAVABOROLE
     Indication: FUNGAL INFECTION
     Dosage: 4 ML, 1X/DAY (5% APPLY ON THE WHOLE TOE AND UNDERNEATH THE TOENAIL ONCE DAILY)
     Dates: start: 20180710, end: 201901
  2. KERYDIN [Suspect]
     Active Substance: TAVABOROLE
     Dosage: UNK, 1X/DAY (5% SOLUTION ONCE DAILY WITH APPLICATOR AS DIRECTED)
  3. KERYDIN [Suspect]
     Active Substance: TAVABOROLE
     Dosage: 43.5 MG, UNK

REACTIONS (3)
  - Skin discolouration [Not Recovered/Not Resolved]
  - Nail necrosis [Not Recovered/Not Resolved]
  - Onychomadesis [Not Recovered/Not Resolved]

NARRATIVE: CASE EVENT DATE: 201812
